FAERS Safety Report 7766003-4 (Version None)
Quarter: 2011Q3

REPORT INFORMATION
  Report Type: 
  Country: None (occurrence: None)
  Receive Date: 20110921
  Receipt Date: 20110912
  Transmission Date: 20111222
  Serious: Yes (Death)
  Sender: FDA-Public Use
  Company Number: US-MYLANLABS-2010S1000959

PATIENT
  Age: 50 Year
  Sex: Female
  Weight: 52.62 kg

DRUGS (11)
  1. METOPROLOL TARTRATE [Concomitant]
  2. FENTANYL-100 [Suspect]
     Indication: BACK PAIN
     Route: 062
  3. OXYCODONE HYDROCHLORIDE [Concomitant]
  4. OXYCODONE HCL [Concomitant]
  5. HYDROCODONE BITARTRATE AND ACETAMINOPHEN [Concomitant]
  6. DIAZEPAM [Concomitant]
  7. AMITRIPTYLINE HCL [Concomitant]
  8. CYCLOPHOSPHAMIDE [Concomitant]
  9. SYNTHROID [Concomitant]
  10. CYMBALTA [Concomitant]
  11. GABAPENTIN [Concomitant]

REACTIONS (1)
  - TOXICITY TO VARIOUS AGENTS [None]
